FAERS Safety Report 11089359 (Version 1)
Quarter: 2015Q2

REPORT INFORMATION
  Report Type: Spontaneous
  Country: US (occurrence: None)
  Receive Date: 20150501
  Receipt Date: 20150501
  Transmission Date: 20150821
  Serious: Yes (Death, Hospitalization)
  Sender: FDA-Public Use
  Company Number: US-H14001-15-00634

PATIENT
  Age: 75 Year
  Sex: Male
  Weight: 81.7 kg

DRUGS (11)
  1. PDGFRA [Suspect]
     Active Substance: PLATELET DERIVED GROWTH FACTOR-BB
     Indication: ANGIOSARCOMA METASTATIC
     Dosage: NOT OTHERWISE SPECIFIED
     Route: 042
  2. TYLENOL PM (DOZOL) [Concomitant]
  3. DOXORUBICIN (DOXORUBICIN) (DOXORUBICIN) [Suspect]
     Active Substance: DOXORUBICIN
     Indication: ANGIOSARCOMA METASTATIC
     Route: 042
     Dates: start: 20120312, end: 20120409
  4. HYDROCHLOROTHIAZIDE. [Concomitant]
     Active Substance: HYDROCHLOROTHIAZIDE
  5. ACIPHEX [Concomitant]
     Active Substance: RABEPRAZOLE SODIUM
  6. TYLENOL [Concomitant]
     Active Substance: ACETAMINOPHEN
  7. COREG [Concomitant]
     Active Substance: CARVEDILOL
  8. VICODIN (PARACETAMOL HYDROCODONE BITARTRATE) [Concomitant]
  9. ZESTRIL (LISINOPRIL) [Concomitant]
  10. PLAVIX (CLOPIDOGREL BISULFATE) [Concomitant]
  11. CRESTOR [Concomitant]
     Active Substance: ROSUVASTATIN CALCIUM

REACTIONS (5)
  - Ejection fraction decreased [None]
  - Dyspnoea [None]
  - Infusion related reaction [None]
  - Cardiac arrest [None]
  - Circulatory collapse [None]

NARRATIVE: CASE EVENT DATE: 2012
